FAERS Safety Report 5201392-6 (Version None)
Quarter: 2007Q1

REPORT INFORMATION
  Report Type: 
  Country: None (occurrence: None)
  Receive Date: 20070104
  Receipt Date: 20061227
  Transmission Date: 20070707
  Serious: Yes (Other)
  Sender: FDA-Public Use
  Company Number: 2006301389

PATIENT
  Age: 38 Year
  Sex: Female

DRUGS (1)
  1. ROGAINE [Suspect]
     Dosage: 1ML BID (1 ML, 2 IN 1 D), TOPICAL
     Route: 061
     Dates: end: 20060101

REACTIONS (4)
  - AMNESIA [None]
  - DEPERSONALISATION [None]
  - DIZZINESS [None]
  - PRURITUS [None]
